FAERS Safety Report 12463983 (Version 3)
Quarter: 2016Q2

REPORT INFORMATION
  Report Type: Spontaneous
  Country: IT (occurrence: IT)
  Receive Date: 20160614
  Receipt Date: 20160627
  Transmission Date: 20160815
  Serious: Yes (Hospitalization, Other)
  Sender: FDA-Public Use
  Company Number: IT-BRACCO-005521

PATIENT
  Sex: Male
  Weight: 3.38 kg

DRUGS (1)
  1. BARIUM SULPHATE [Suspect]
     Active Substance: BARIUM SULFATE
     Indication: CHEST X-RAY
     Route: 002

REACTIONS (2)
  - Respiratory distress [Recovered/Resolved]
  - Neonatal aspiration [Recovered/Resolved]
